FAERS Safety Report 9341840 (Version 1)
Quarter: 2013Q2

REPORT INFORMATION
  Report Type: Spontaneous
  Country: US (occurrence: None)
  Receive Date: 20130606
  Receipt Date: 20130606
  Transmission Date: 20140414
  Serious: Yes (Death)
  Sender: FDA-Public Use
  Company Number: 2013-214

PATIENT
  Age: 44 Year
  Sex: Female

DRUGS (3)
  1. ZICONOTIDE [Suspect]
     Indication: PAIN
     Route: 037
     Dates: start: 20110502
  2. SUFENTANIL CITRATE [Suspect]
     Indication: PAIN
     Route: 037
  3. BUPIVACAINE HYDROCHLORIDE [Suspect]
     Indication: PAIN
     Route: 037

REACTIONS (2)
  - Myocardial infarction [None]
  - Pain [None]
